FAERS Safety Report 13334039 (Version 1)
Quarter: 2017Q1

REPORT INFORMATION
  Report Type: Report from Study
  Country: US (occurrence: US)
  Receive Date: 20170314
  Receipt Date: 20170314
  Transmission Date: 20170428
  Serious: Yes (Hospitalization)
  Sender: FDA-Public Use
  Company Number: US-ASTRAZENECA-2017SE25077

PATIENT
  Age: 70 Year
  Sex: Female

DRUGS (2)
  1. AZD2281 [Suspect]
     Active Substance: OLAPARIB
     Indication: TRIPLE NEGATIVE BREAST CANCER
     Route: 048
     Dates: start: 20161026, end: 20170214
  2. AZD2014 [Suspect]
     Active Substance: INVESTIGATIONAL PRODUCT
     Indication: TRIPLE NEGATIVE BREAST CANCER
     Route: 048
     Dates: start: 20161026, end: 20170214

REACTIONS (1)
  - Pneumonitis [Unknown]

NARRATIVE: CASE EVENT DATE: 20170213
